FAERS Safety Report 7967330-8 (Version None)
Quarter: 2011Q4

REPORT INFORMATION
  Report Type: 
  Country: None (occurrence: None)
  Receive Date: 20111209
  Receipt Date: 20111201
  Transmission Date: 20120403
  Serious: Yes (Hospitalization)
  Sender: FDA-Public Use
  Company Number: US-US-EMD SERONO, INC.-7099669

PATIENT
  Age: 60 Year
  Sex: Male

DRUGS (4)
  1. LANTUS [Concomitant]
     Indication: TYPE 1 DIABETES MELLITUS
     Dates: end: 20110101
  2. EGRIFTA [Suspect]
     Indication: PRODUCT USED FOR UNKNOWN INDICATION
     Dates: start: 20111025
  3. LANTUS [Concomitant]
     Dates: start: 20110101
  4. NOVOLOG [Concomitant]
     Indication: TYPE 1 DIABETES MELLITUS
     Dosage: 6-10 UNITS

REACTIONS (1)
  - DIABETIC HYPEROSMOLAR COMA [None]
